FAERS Safety Report 4675885-4 (Version None)
Quarter: 2005Q2

REPORT INFORMATION
  Report Type: 
  Country: None (occurrence: None)
  Receive Date: 20050527
  Receipt Date: 20050422
  Transmission Date: 20051028
  Serious: Yes (Hospitalization)
  Sender: FDA-Public Use
  Company Number: JP-BRISTOL-MYERS SQUIBB COMPANY-12947669

PATIENT
  Age: 75 Year
  Sex: Male

DRUGS (5)
  1. MEVALOTIN [Suspect]
     Indication: HYPERLIPIDAEMIA
     Route: 048
     Dates: start: 20050328, end: 20050329
  2. BEZATOL [Suspect]
     Indication: HYPERTRIGLYCERIDAEMIA
     Route: 048
     Dates: start: 20041201, end: 20050330
  3. WARFARIN [Concomitant]
     Dates: start: 20040110
  4. EUGLUCON [Concomitant]
     Indication: DIABETES MELLITUS
     Dates: start: 20040110
  5. PANALDINE [Concomitant]
     Dates: start: 20040110

REACTIONS (3)
  - CONTUSION [None]
  - FALL [None]
  - RHABDOMYOLYSIS [None]
